FAERS Safety Report 8505350-5 (Version None)
Quarter: 2012Q2

REPORT INFORMATION
  Report Type: 
  Country: None (occurrence: None)
  Receive Date: 20120405
  Receipt Date: 20091012
  Transmission Date: 20120825
  Serious: Yes (Other)
  Sender: FDA-Public Use
  Company Number: PHEH2009US13566

PATIENT
  Age: 67 Year
  Sex: Female

DRUGS (4)
  1. ASPIRIN [Concomitant]
  2. RECLAST [Suspect]
     Dates: start: 20091008
  3. SYNTHROID [Concomitant]
  4. PRILOSEC [Concomitant]

REACTIONS (4)
  - CHILLS [None]
  - SLUGGISHNESS [None]
  - HYPERTENSION [None]
  - TREMOR [None]
